FAERS Safety Report 10362994 (Version 1)
Quarter: 2014Q3

REPORT INFORMATION
  Report Type: Spontaneous
  Country: JP (occurrence: JP)
  Receive Date: 20140805
  Receipt Date: 20140805
  Transmission Date: 20150326
  Serious: Yes (Death)
  Sender: FDA-Public Use
  Company Number: PHHY2002JP002970

PATIENT
  Sex: Female

DRUGS (10)
  1. ALFAROL [Concomitant]
     Active Substance: ALFACALCIDOL
  2. EXCELASE [Concomitant]
  3. CONIEL [Concomitant]
     Active Substance: BENIDIPINE HYDROCHLORIDE
  4. CALCIUM L-ASPARTATE [Concomitant]
  5. SILECE [Concomitant]
     Active Substance: FLUNITRAZEPAM
  6. GLIVEC [Suspect]
     Active Substance: IMATINIB MESYLATE
     Indication: CHRONIC MYELOID LEUKAEMIA
     Dosage: 400 MG, DAILY
     Dates: start: 20021106
  7. GASTER [Concomitant]
     Active Substance: FAMOTIDINE
  8. SELBEX [Concomitant]
     Active Substance: TEPRENONE
  9. LASIX [Concomitant]
     Active Substance: FUROSEMIDE
  10. BIOFERMIN [Concomitant]
     Active Substance: BACILLUS SUBTILIS\LACTOBACILLUS ACIDOPHILUS\STREPTOCOCCUS FAECAIS

REACTIONS (2)
  - White blood cell count decreased [Unknown]
  - Death [Fatal]
